FAERS Safety Report 6305672-2 (Version None)
Quarter: 2009Q3

REPORT INFORMATION
  Report Type: 
  Country: None (occurrence: None)
  Receive Date: 20090807
  Receipt Date: 20090721
  Transmission Date: 20100115
  Serious: Yes (Life-Threatening, Hospitalization)
  Sender: FDA-Public Use
  Company Number: 2280705-2009-00010

PATIENT
  Sex: Female

DRUGS (1)
  1. ORAJEL REGULAR STRENGTH TOOTHACHE PAIN RELIEF GEL [Suspect]
     Indication: TOOTHACHE
     Dosage: PER PACKAGE DIRECTIONS

REACTIONS (2)
  - CARDIAC ARREST [None]
  - METHAEMOGLOBINAEMIA [None]
